FAERS Safety Report 8303869 (Version 2)
Quarter: 2013Q4

REPORT INFORMATION
  Report Type: Spontaneous
  Country: US (occurrence: US)
  Receive Date: 20111221
  Receipt Date: 20131230
  Transmission Date: 20140711
  Serious: Yes (Other)
  Sender: FDA-Public Use
  Company Number: US-BAYER-2011-119594

PATIENT
  Age: 38 Year
  Sex: Female

DRUGS (6)
  1. YAZ [Suspect]
     Dosage: UNK
     Dates: start: 200811, end: 200910
  2. TREXIMET [Concomitant]
  3. VERAPAMIL [Concomitant]
  4. SYMBICORT [Concomitant]
  5. ALBUTEROL [Concomitant]
  6. MILNACIPRAN HYDROCHLORIDE [Concomitant]

REACTIONS (7)
  - Gallbladder disorder [None]
  - Cholecystitis acute [None]
  - Post cholecystectomy syndrome [None]
  - Injury [None]
  - Anxiety [None]
  - Anhedonia [None]
  - Pain [None]
